FAERS Safety Report 7227321-1 (Version None)
Quarter: 2011Q1

REPORT INFORMATION
  Report Type: 
  Country: None (occurrence: None)
  Receive Date: 20110114
  Receipt Date: 20110110
  Transmission Date: 20110831
  Serious: Yes (Hospitalization)
  Sender: FDA-Public Use
  Company Number: B0693688A

PATIENT
  Sex: Female

DRUGS (4)
  1. ZYPREXA [Concomitant]
     Route: 065
  2. SEROQUEL [Concomitant]
     Route: 065
  3. WELLBUTRIN [Suspect]
     Indication: DEPRESSION
     Dosage: 300MG PER DAY
     Route: 048
     Dates: start: 20101205, end: 20101221
  4. SEROPRAM [Concomitant]
     Route: 065

REACTIONS (3)
  - LOSS OF CONSCIOUSNESS [None]
  - TONIC CLONIC MOVEMENTS [None]
  - SYNCOPE [None]
